FAERS Safety Report 4502384-2 (Version None)
Quarter: 2004Q4

REPORT INFORMATION
  Report Type: 
  Country: None (occurrence: None)
  Receive Date: 20041110
  Receipt Date: 20041104
  Transmission Date: 20050328
  Serious: Yes (Other)
  Sender: FDA-Public Use
  Company Number: S04-FRA-06408-01

PATIENT
  Age: 80 Year
  Sex: Female

DRUGS (5)
  1. EBIXA (MEMANTINE) [Suspect]
     Indication: DEMENTIA ALZHEIMER'S TYPE
     Dosage: 5 MG QD PO
     Route: 048
     Dates: start: 20040801
  2. ARICEPT [Concomitant]
  3. ZOLOFT [Concomitant]
  4. PRAVASTATIN [Concomitant]
  5. ZOPICLONE [Concomitant]

REACTIONS (3)
  - ANTINUCLEAR ANTIBODY POSITIVE [None]
  - IMMUNOLOGY TEST ABNORMAL [None]
  - PEMPHIGUS [None]
